FAERS Safety Report 19806010 (Version 1)
Quarter: 2021Q3

REPORT INFORMATION
  Report Type: Spontaneous
  Country: US (occurrence: US)
  Receive Date: 20210908
  Receipt Date: 20210908
  Transmission Date: 20211014
  Serious: No
  Sender: FDA-Public Use
  Company Number: US-ASTELLAS-2021US010840

PATIENT
  Sex: Male

DRUGS (2)
  1. LUPRON [Concomitant]
     Active Substance: LEUPROLIDE ACETATE
     Indication: PRODUCT USED FOR UNKNOWN INDICATION
     Dosage: UNK UNK, UNKNOWN FREQ.
     Route: 065
  2. XTANDI [Suspect]
     Active Substance: ENZALUTAMIDE
     Indication: PRODUCT USED FOR UNKNOWN INDICATION
     Route: 065

REACTIONS (13)
  - Amnesia [Unknown]
  - Prostatic specific antigen increased [Not Recovered/Not Resolved]
  - Bone pain [Recovering/Resolving]
  - Nocturia [Not Recovered/Not Resolved]
  - Hypertension [Unknown]
  - Headache [Unknown]
  - Flatulence [Unknown]
  - Urine odour abnormal [Unknown]
  - Pain [Recovering/Resolving]
  - Micturition urgency [Unknown]
  - Myalgia [Recovering/Resolving]
  - Somnolence [Unknown]
  - Drug ineffective [Unknown]
